FAERS Safety Report 6467078-5 (Version None)
Quarter: 2009Q4

REPORT INFORMATION
  Report Type: 
  Country: None (occurrence: None)
  Receive Date: 20091202
  Receipt Date: 20091117
  Transmission Date: 20100525
  Serious: Yes (Death, Life-Threatening, Hospitalization)
  Sender: FDA-Public Use
  Company Number: US-PFIZER INC-2009291375

PATIENT
  Sex: Male
  Weight: 59 kg

DRUGS (13)
  1. SUNITINIB MALATE [Suspect]
     Indication: METASTASIS
     Dosage: 25 MG, 1X/DAY
     Route: 048
     Dates: start: 20091001, end: 20091012
  2. PROGRAFT [Concomitant]
  3. PREDNISONE [Concomitant]
  4. ACETYLSALICYLIC ACID [Concomitant]
  5. COREG [Concomitant]
  6. LANTUS [Concomitant]
  7. NOVOLOG [Concomitant]
  8. TYLENOL (CAPLET) [Concomitant]
  9. MOTRIN [Concomitant]
  10. PLAVIX [Concomitant]
  11. CELLCEPT [Concomitant]
  12. HUMALOG [Concomitant]
  13. COUMADIN [Concomitant]

REACTIONS (1)
  - GASTROINTESTINAL HAEMORRHAGE [None]
